FAERS Safety Report 13424990 (Version 3)
Quarter: 2017Q2

REPORT INFORMATION
  Report Type: Spontaneous
  Country: US (occurrence: US)
  Receive Date: 20170410
  Receipt Date: 20170613
  Transmission Date: 20170830
  Serious: No
  Sender: FDA-Public Use
  Company Number: US-009507513-1703USA008393

PATIENT
  Age: 4 Month
  Sex: Female

DRUGS (1)
  1. INTRON A [Suspect]
     Active Substance: INTERFERON ALFA-2B
     Indication: HAEMANGIOMA-THROMBOCYTOPENIA SYNDROME

REACTIONS (2)
  - Product use in unapproved indication [Unknown]
  - No adverse event [Unknown]
